FAERS Safety Report 6343345-0 (Version None)
Quarter: 2009Q3

REPORT INFORMATION
  Report Type: 
  Country: None (occurrence: None)
  Receive Date: 20090908
  Receipt Date: 20090901
  Transmission Date: 20100115
  Serious: No
  Sender: FDA-Public Use
  Company Number: US-B.I. PHARMACEUTICALS,INC./RIDGEFIELD-2009-BP-10289BP

PATIENT
  Sex: Female

DRUGS (10)
  1. SPIRIVA [Suspect]
     Indication: EMPHYSEMA
     Dosage: 18 MCG
     Route: 055
     Dates: start: 20050101
  2. LIPITOR [Suspect]
     Indication: BLOOD CHOLESTEROL INCREASED
     Dates: end: 20080101
  3. CLONAZEPAM [Concomitant]
     Indication: ANXIETY
     Route: 048
     Dates: start: 20050101
  4. LEXAPRO [Concomitant]
     Indication: DEPRESSION
     Route: 048
     Dates: start: 20000101
  5. PROPRANOLOL [Concomitant]
  6. VERAPAMIL [Concomitant]
     Indication: HYPERTENSION
     Dates: start: 19900101
  7. WELLBUTRIN [Concomitant]
     Indication: DEPRESSION
     Dates: start: 20000101
  8. LEVOTHYROXINE [Concomitant]
     Indication: HYPOTHYROIDISM
     Dosage: 100 MCG
     Route: 048
     Dates: start: 19990101
  9. LEVOTHYROXINE [Concomitant]
     Dosage: 50 MCG
     Route: 048
     Dates: start: 19990101
  10. PROAIR HFA [Concomitant]
     Indication: EMPHYSEMA

REACTIONS (6)
  - AMNESIA [None]
  - ARTHROPOD STING [None]
  - BLOOD CHOLESTEROL INCREASED [None]
  - ERYTHEMA [None]
  - GINGIVAL PAIN [None]
  - PAIN OF SKIN [None]
